FAERS Safety Report 21109648 (Version 2)
Quarter: 2022Q3

REPORT INFORMATION
  Report Type: Spontaneous
  Country: HR (occurrence: HR)
  Receive Date: 20220721
  Receipt Date: 20220804
  Transmission Date: 20221026
  Serious: Yes (Other)
  Sender: FDA-Public Use
  Company Number: HR-TEVA-2022-HR-2055798

PATIENT
  Age: 6 Decade
  Sex: Male

DRUGS (1)
  1. CYCLOSPORINE [Suspect]
     Active Substance: CYCLOSPORINE
     Indication: Immunosuppressant drug therapy
     Route: 065
     Dates: start: 2017

REACTIONS (3)
  - Squamous cell carcinoma of skin [Unknown]
  - Metastases to salivary gland [Unknown]
  - Facial paresis [Unknown]

NARRATIVE: CASE EVENT DATE: 20191001
